FAERS Safety Report 15080493 (Version 1)
Quarter: 2018Q2

REPORT INFORMATION
  Report Type: Report from Study
  Country: None (occurrence: CO)
  Receive Date: 20180628
  Receipt Date: 20180628
  Transmission Date: 20180711
  Serious: Yes (Hospitalization)
  Sender: FDA-Public Use
  Company Number: CO-ABBVIE-18K-036-2402766-00

PATIENT
  Age: 38 Year
  Sex: Male
  Weight: 70 kg

DRUGS (1)
  1. HUMIRA [Suspect]
     Active Substance: ADALIMUMAB
     Indication: CROHN^S DISEASE
     Route: 058
     Dates: start: 20120209, end: 20180321

REACTIONS (6)
  - Rectal abscess [Recovering/Resolving]
  - Nuclear magnetic resonance imaging abnormal [Unknown]
  - Crohn^s disease [Recovering/Resolving]
  - Hyperthermia [Recovering/Resolving]
  - Abdominal distension [Recovering/Resolving]
  - Gastrointestinal haemorrhage [Recovering/Resolving]

NARRATIVE: CASE EVENT DATE: 2018
